FAERS Safety Report 6816468-7 (Version None)
Quarter: 2010Q2

REPORT INFORMATION
  Report Type: 
  Country: None (occurrence: None)
  Receive Date: 20100630
  Receipt Date: 20100624
  Transmission Date: 20101027
  Serious: Yes (Other)
  Sender: FDA-Public Use
  Company Number: CH-1182371

PATIENT
  Sex: Female

DRUGS (1)
  1. TRAVATAN [Suspect]
     Dosage: OPHTHALMIC
     Route: 047
     Dates: start: 20060101

REACTIONS (1)
  - ACQUIRED CORNEAL DYSTROPHY [None]
